FAERS Safety Report 20841204 (Version 1)
Quarter: 2022Q2

REPORT INFORMATION
  Report Type: Spontaneous
  Country: JP (occurrence: JP)
  Receive Date: 20220517
  Receipt Date: 20220517
  Transmission Date: 20220720
  Serious: Yes (Other)
  Sender: FDA-Public Use
  Company Number: JP-GILEAD-2022-0581259

PATIENT
  Weight: 1.479 kg

DRUGS (15)
  1. VEKLURY [Suspect]
     Active Substance: REMDESIVIR
     Indication: COVID-19 pneumonia
     Dosage: 200 MG, QD
     Route: 064
  2. VEKLURY [Suspect]
     Active Substance: REMDESIVIR
     Dosage: 100 MG, QD
     Route: 064
  3. PREDNISOLONE SODIUM SUCCINATE [Concomitant]
     Active Substance: PREDNISOLONE SODIUM SUCCINATE
     Indication: COVID-19 pneumonia
     Dosage: 40 MG, QD
     Route: 064
  4. PREDNISOLONE SODIUM SUCCINATE [Concomitant]
     Active Substance: PREDNISOLONE SODIUM SUCCINATE
     Dosage: 35 MG, QD
     Route: 064
  5. HEPARIN SODIUM [Concomitant]
     Active Substance: HEPARIN SODIUM
     Dosage: 10000 IU, QD
     Route: 064
  6. HEPARIN SODIUM [Concomitant]
     Active Substance: HEPARIN SODIUM
     Dosage: UNK UNK, QD
     Route: 064
  7. HEPARIN SODIUM [Concomitant]
     Active Substance: HEPARIN SODIUM
     Dosage: 10000 IU, QD
     Route: 064
  8. DEXAMETHASONE [Concomitant]
     Active Substance: DEXAMETHASONE
     Dosage: 6.6 MG
     Route: 064
  9. FENTANYL CITRATE [Concomitant]
     Active Substance: FENTANYL CITRATE
     Indication: Analgesic therapy
     Dosage: UNK
     Route: 064
  10. FENTANYL CITRATE [Concomitant]
     Active Substance: FENTANYL CITRATE
     Indication: Sedative therapy
  11. PROPOFOL [Concomitant]
     Active Substance: PROPOFOL
     Indication: Analgesic therapy
     Route: 064
  12. PROPOFOL [Concomitant]
     Active Substance: PROPOFOL
     Indication: Sedative therapy
  13. MIDAZOLAM [Concomitant]
     Active Substance: MIDAZOLAM
     Indication: Analgesic therapy
     Route: 064
  14. MIDAZOLAM [Concomitant]
     Active Substance: MIDAZOLAM
     Indication: Sedative therapy
  15. TOCILIZUMAB [Concomitant]
     Active Substance: TOCILIZUMAB
     Dosage: 600 MG
     Route: 064

REACTIONS (3)
  - Low birth weight baby [Unknown]
  - Premature baby [Unknown]
  - Foetal exposure during pregnancy [Recovered/Resolved]
